FAERS Safety Report 7419169-X (Version None)
Quarter: 2011Q2

REPORT INFORMATION
  Report Type: 
  Country: None (occurrence: None)
  Receive Date: 20110415
  Receipt Date: 20110405
  Transmission Date: 20111010
  Serious: Yes (Hospitalization, Other)
  Sender: FDA-Public Use
  Company Number: US-BAXTER-2010BH003732

PATIENT
  Age: 37 Year
  Sex: Male
  Weight: 79 kg

DRUGS (83)
  1. HEPARIN SODIUM INJECTION [Suspect]
     Route: 042
     Dates: start: 20071001, end: 20080201
  2. HEPARIN SODIUM INJECTION [Suspect]
     Route: 033
     Dates: start: 20071001, end: 20080201
  3. HEPARIN SODIUM INJECTION [Suspect]
     Route: 065
     Dates: start: 20070501, end: 20070501
  4. HEPARIN SODIUM INJECTION [Suspect]
     Route: 033
     Dates: start: 20071215, end: 20080601
  5. HEPARIN SODIUM INJECTION [Suspect]
     Route: 033
     Dates: start: 20071215, end: 20080601
  6. HEPARIN SODIUM INJECTION [Suspect]
     Route: 033
     Dates: start: 20071001, end: 20080201
  7. HEPARIN SODIUM INJECTION [Suspect]
     Route: 058
     Dates: start: 20080201, end: 20080225
  8. HEPARIN SODIUM INJECTION [Suspect]
     Route: 042
     Dates: start: 20080225, end: 20080101
  9. HEPARIN SODIUM INJECTION [Suspect]
     Route: 042
     Dates: start: 20080414, end: 20080414
  10. HEPARIN SODIUM INJECTION [Suspect]
     Route: 042
     Dates: start: 20080414, end: 20080414
  11. HEPARIN SODIUM INJECTION [Suspect]
     Route: 058
     Dates: start: 20090320, end: 20090324
  12. PREDNISONE [Concomitant]
     Indication: PRODUCT USED FOR UNKNOWN INDICATION
     Route: 065
  13. LEVAQUIN [Concomitant]
     Indication: PRODUCT USED FOR UNKNOWN INDICATION
     Route: 065
  14. FUROSEMIDE [Concomitant]
     Indication: PRODUCT USED FOR UNKNOWN INDICATION
     Route: 048
  15. HEPARIN SODIUM INJECTION [Suspect]
     Indication: PERITONEAL DIALYSIS
     Route: 042
     Dates: start: 20071001, end: 20080201
  16. HEPARIN SODIUM INJECTION [Suspect]
     Indication: THROMBOSIS PROPHYLAXIS
     Route: 042
     Dates: start: 20071001, end: 20080201
  17. HEPARIN SODIUM INJECTION [Suspect]
     Route: 042
     Dates: start: 20071001, end: 20080201
  18. HEPARIN SODIUM INJECTION [Suspect]
     Route: 033
     Dates: start: 20071001, end: 20080201
  19. HEPARIN SODIUM INJECTION [Suspect]
     Route: 033
     Dates: start: 20071215, end: 20080601
  20. HEPARIN SODIUM INJECTION [Suspect]
     Route: 010
     Dates: start: 20080407, end: 20080505
  21. HEPARIN SODIUM INJECTION [Suspect]
     Route: 010
     Dates: start: 20080407, end: 20080505
  22. HEPARIN SODIUM INJECTION [Suspect]
     Route: 033
     Dates: start: 20071001, end: 20080201
  23. RENA-VITE [Concomitant]
     Indication: PRODUCT USED FOR UNKNOWN INDICATION
     Route: 048
  24. HEPARIN SODIUM INJECTION [Suspect]
     Route: 042
     Dates: start: 20071001, end: 20080201
  25. HEPARIN SODIUM INJECTION [Suspect]
     Route: 065
     Dates: start: 20070501, end: 20070501
  26. HEPARIN SODIUM INJECTION [Suspect]
     Route: 033
     Dates: start: 20071206, end: 20080101
  27. HEPARIN SODIUM INJECTION [Suspect]
     Route: 010
     Dates: start: 20080407, end: 20080505
  28. HEPARIN SODIUM INJECTION [Suspect]
     Route: 033
     Dates: start: 20071001, end: 20080201
  29. HEPARIN SODIUM INJECTION [Suspect]
     Route: 033
     Dates: start: 20071001, end: 20080201
  30. HEPARIN SODIUM INJECTION [Suspect]
     Route: 042
     Dates: start: 20090316, end: 20090316
  31. HEPARIN SODIUM INJECTION [Suspect]
     Route: 042
     Dates: start: 20090316, end: 20090316
  32. HEPARIN SODIUM INJECTION [Suspect]
     Route: 042
     Dates: start: 20090316, end: 20090316
  33. IMMUNE GLOBULIN INTRAVENOUS (HUMAN) [Suspect]
     Indication: DEMYELINATING POLYNEUROPATHY
     Route: 042
     Dates: start: 20071201, end: 20080101
  34. MINOXIDIL [Concomitant]
     Indication: HYPERTENSION
     Route: 065
  35. CELEBREX [Concomitant]
     Indication: PRODUCT USED FOR UNKNOWN INDICATION
     Route: 065
  36. HEPARIN SODIUM INJECTION [Suspect]
     Route: 042
     Dates: start: 20071001, end: 20080201
  37. HEPARIN SODIUM INJECTION [Suspect]
     Route: 033
     Dates: start: 20071206, end: 20080101
  38. HEPARIN SODIUM INJECTION [Suspect]
     Route: 010
     Dates: start: 20080407, end: 20080505
  39. HEPARIN SODIUM INJECTION [Suspect]
     Route: 033
     Dates: start: 20071001, end: 20080201
  40. HEPARIN SODIUM INJECTION [Suspect]
     Route: 033
     Dates: start: 20071001, end: 20080201
  41. HEPARIN SODIUM INJECTION [Suspect]
     Route: 010
     Dates: start: 20080407, end: 20080505
  42. DILAUDID [Concomitant]
     Indication: PRODUCT USED FOR UNKNOWN INDICATION
     Route: 065
  43. ARANESP [Concomitant]
     Indication: ANAEMIA
     Route: 058
  44. PRILOSEC [Concomitant]
     Indication: PRODUCT USED FOR UNKNOWN INDICATION
     Route: 048
  45. HEPARIN SODIUM INJECTION [Suspect]
     Route: 042
     Dates: start: 20071001, end: 20080201
  46. HEPARIN SODIUM INJECTION [Suspect]
     Route: 033
     Dates: start: 20071215, end: 20080601
  47. HEPARIN SODIUM INJECTION [Suspect]
     Route: 033
     Dates: start: 20071206, end: 20080101
  48. HEPARIN SODIUM INJECTION [Suspect]
     Route: 010
     Dates: start: 20080407, end: 20080505
  49. HEPARIN SODIUM INJECTION [Suspect]
     Route: 042
     Dates: start: 20080225, end: 20080101
  50. HEPARIN SODIUM INJECTION [Suspect]
     Route: 042
     Dates: start: 20090316, end: 20090316
  51. HEPARIN SODIUM INJECTION [Suspect]
     Route: 058
     Dates: start: 20090320, end: 20090324
  52. HEPARIN SODIUM INJECTION [Suspect]
     Route: 058
     Dates: start: 20090320, end: 20090324
  53. CONTRAST MEDIA [Concomitant]
     Indication: PRODUCT USED FOR UNKNOWN INDICATION
     Route: 065
  54. IRON [Concomitant]
     Indication: DIALYSIS
     Route: 065
  55. HEPARIN SODIUM INJECTION [Suspect]
     Route: 010
     Dates: start: 20080407, end: 20080505
  56. HEPARIN SODIUM INJECTION [Suspect]
     Route: 033
     Dates: start: 20071001, end: 20080201
  57. HEPARIN SODIUM INJECTION [Suspect]
     Route: 058
     Dates: start: 20080201, end: 20080225
  58. HEPARIN SODIUM INJECTION [Suspect]
     Route: 042
     Dates: start: 20080414, end: 20080414
  59. HEPARIN SODIUM INJECTION [Suspect]
     Route: 058
     Dates: start: 20090320, end: 20090324
  60. IMMUNE GLOBULIN INTRAVENOUS (HUMAN) [Suspect]
     Indication: OFF LABEL USE
     Route: 042
     Dates: start: 20071201, end: 20080101
  61. ALLOPURINOL [Concomitant]
     Indication: PRODUCT USED FOR UNKNOWN INDICATION
     Route: 048
  62. FOSRENOL [Concomitant]
     Indication: HYPERPHOSPHATAEMIA
     Route: 048
  63. AMBIEN [Concomitant]
     Indication: PRODUCT USED FOR UNKNOWN INDICATION
     Route: 048
  64. HEPARIN SODIUM INJECTION [Suspect]
     Indication: HAEMODIALYSIS
     Route: 042
     Dates: start: 20071001, end: 20080201
  65. HEPARIN SODIUM INJECTION [Suspect]
     Route: 042
     Dates: start: 20071001, end: 20080201
  66. HEPARIN SODIUM INJECTION [Suspect]
     Route: 033
     Dates: start: 20071206, end: 20080101
  67. HEPARIN SODIUM INJECTION [Suspect]
     Route: 010
     Dates: start: 20080407, end: 20080505
  68. HEPARIN SODIUM INJECTION [Suspect]
     Route: 042
     Dates: start: 20080225, end: 20080101
  69. REGLAN [Concomitant]
     Indication: PRODUCT USED FOR UNKNOWN INDICATION
     Route: 065
  70. HEPARIN SODIUM INJECTION [Suspect]
     Indication: INTRAVENOUS CATHETER MANAGEMENT
     Route: 042
     Dates: start: 20071001, end: 20080201
  71. HEPARIN SODIUM INJECTION [Suspect]
     Route: 042
     Dates: start: 20071001, end: 20080201
  72. HEPARIN SODIUM INJECTION [Suspect]
     Route: 042
     Dates: start: 20071001, end: 20080201
  73. HEPARIN SODIUM INJECTION [Suspect]
     Route: 033
     Dates: start: 20071001, end: 20080201
  74. HEPARIN SODIUM INJECTION [Suspect]
     Route: 033
     Dates: start: 20071001, end: 20080201
  75. HEPARIN SODIUM INJECTION [Suspect]
     Route: 065
     Dates: start: 20070501, end: 20070501
  76. HEPARIN SODIUM INJECTION [Suspect]
     Route: 065
     Dates: start: 20070501, end: 20070501
  77. HEPARIN SODIUM INJECTION [Suspect]
     Route: 058
     Dates: start: 20080201, end: 20080225
  78. HEPARIN SODIUM INJECTION [Suspect]
     Route: 058
     Dates: start: 20080201, end: 20080225
  79. HEPARIN SODIUM INJECTION [Suspect]
     Route: 033
     Dates: start: 20071001, end: 20080201
  80. HEPARIN SODIUM INJECTION [Suspect]
     Route: 042
     Dates: start: 20080225, end: 20080101
  81. HEPARIN SODIUM INJECTION [Suspect]
     Route: 042
     Dates: start: 20080414, end: 20080414
  82. LABETALOL [Concomitant]
     Indication: PRODUCT USED FOR UNKNOWN INDICATION
     Route: 048
  83. SENSIPAR [Concomitant]
     Indication: PRODUCT USED FOR UNKNOWN INDICATION
     Route: 048

REACTIONS (35)
  - BLOOD PRESSURE DECREASED [None]
  - ABDOMINAL PAIN [None]
  - SYNCOPE [None]
  - DEVICE RELATED INFECTION [None]
  - NEPHROLITHIASIS [None]
  - HEADACHE [None]
  - SEPSIS [None]
  - PERITONITIS [None]
  - VOMITING [None]
  - PRODUCTIVE COUGH [None]
  - HYPERTENSION [None]
  - PROSTATITIS [None]
  - PULMONARY EMBOLISM [None]
  - URAEMIC ENCEPHALOPATHY [None]
  - DEMYELINATING POLYNEUROPATHY [None]
  - PLEURAL EFFUSION [None]
  - DEPRESSED LEVEL OF CONSCIOUSNESS [None]
  - SKIN DISCOLOURATION [None]
  - ENDOCARDITIS [None]
  - PERICARDIAL EFFUSION [None]
  - MUSCULOSKELETAL PAIN [None]
  - PNEUMONIA [None]
  - EPISTAXIS [None]
  - UNRESPONSIVE TO STIMULI [None]
  - ARRHYTHMIA [None]
  - ASTHENIA [None]
  - PYREXIA [None]
  - MALAISE [None]
  - THIRST [None]
  - DRUG INEFFECTIVE [None]
  - OSTEOMYELITIS [None]
  - ATRIAL FIBRILLATION [None]
  - WEIGHT DECREASED [None]
  - THROMBOCYTOPENIA [None]
  - RESTLESSNESS [None]
